FAERS Safety Report 9055433 (Version 2)
Quarter: 2013Q2

REPORT INFORMATION
  Report Type: Spontaneous
  Country: CA (occurrence: CA)
  Receive Date: 20130206
  Receipt Date: 20130401
  Transmission Date: 20140414
  Serious: Yes (Disabling, Other)
  Sender: FDA-Public Use
  Company Number: CA-ASTRAZENECA-2013SE07358

PATIENT
  Age: 51 Year
  Sex: Male

DRUGS (3)
  1. RHINOCORT [Suspect]
     Dosage: TWO APPLICATIONS IN EACH NOSTRILS TWICE DAILY
     Route: 045
     Dates: start: 201212, end: 201302
  2. DUOTRAV [Concomitant]
  3. CIALIS [Concomitant]

REACTIONS (2)
  - Intraocular pressure increased [Not Recovered/Not Resolved]
  - Blindness [Not Recovered/Not Resolved]
